FAERS Safety Report 14144264 (Version 1)
Quarter: 2017Q4

REPORT INFORMATION
  Report Type: Spontaneous
  Country: US (occurrence: None)
  Receive Date: 20171030
  Receipt Date: 20171030
  Transmission Date: 20180321
  Serious: No
  Sender: FDA-Public Use
  Company Number: None

PATIENT
  Age: 71 Year
  Sex: Female
  Weight: 258.9 kg

DRUGS (1)
  1. SACUBITRIL/VALSARTAN [Suspect]
     Active Substance: SACUBITRIL\VALSARTAN
     Indication: CARDIAC FAILURE CONGESTIVE
     Dosage: 24/26MG
     Route: 048
     Dates: start: 20170601, end: 20170807

REACTIONS (3)
  - Dizziness [None]
  - Nervous system disorder [None]
  - Feeling abnormal [None]

NARRATIVE: CASE EVENT DATE: 20170620
